FAERS Safety Report 8480252-1 (Version None)
Quarter: 2012Q2

REPORT INFORMATION
  Report Type: 
  Country: None (occurrence: None)
  Receive Date: 20120629
  Receipt Date: 20110623
  Transmission Date: 20120825
  Serious: Yes (Hospitalization, Other)
  Sender: FDA-Public Use
  Company Number: PHHY2011IN38053

PATIENT
  Age: 69 Year
  Sex: Female

DRUGS (1)
  1. ZOLEDRONOC ACID [Suspect]
     Dosage: 5 MG/100ML/YEAR
     Route: 042
     Dates: start: 20100923

REACTIONS (11)
  - CREPITATIONS [None]
  - HUMERUS FRACTURE [None]
  - SWELLING [None]
  - INJURY [None]
  - OSTEOPOROSIS [None]
  - FRACTURE [None]
  - MUSCULOSKELETAL PAIN [None]
  - HAND FRACTURE [None]
  - RHEUMATOID ARTHRITIS [None]
  - FALL [None]
  - PAIN IN EXTREMITY [None]
